FAERS Safety Report 7005050-7 (Version None)
Quarter: 2010Q3

REPORT INFORMATION
  Report Type: 
  Country: None (occurrence: None)
  Receive Date: 20100921
  Receipt Date: 20100908
  Transmission Date: 20110219
  Serious: Yes (Other)
  Sender: FDA-Public Use
  Company Number: PHHY2009BR57941

PATIENT
  Age: 64 Year
  Sex: Female
  Weight: 67.5 kg

DRUGS (3)
  1. DIOVAN [Suspect]
     Indication: HYPERTENSION
     Dosage: 1 TABLET DAILY
     Route: 048
  2. EXFORGE [Suspect]
     Indication: HYPERTENSION
     Dosage: ONE TABLET DAILY (UNSPECIFIED IF WAS 1 TABLET OF EACH ACTIVE)
     Route: 048
  3. EXFORGE [Suspect]
     Indication: HYPERTENSION
     Dosage: 1 TABLET (80/5 MG)
     Route: 048

REACTIONS (8)
  - DRUG DISPENSING ERROR [None]
  - DRY MOUTH [None]
  - INTRAOCULAR PRESSURE INCREASED [None]
  - LIP SWELLING [None]
  - OSTEOPOROSIS [None]
  - PRURITUS GENERALISED [None]
  - SPEECH DISORDER [None]
  - SWELLING FACE [None]
